FAERS Safety Report 7995583-9 (Version None)
Quarter: 2011Q4

REPORT INFORMATION
  Report Type: 
  Country: None (occurrence: None)
  Receive Date: 20111220
  Receipt Date: 20111207
  Transmission Date: 20120403
  Serious: Yes (Death)
  Sender: FDA-Public Use
  Company Number: CA-MERCK-1112USA00951

PATIENT
  Age: 31 Year
  Sex: Female
  Weight: 54 kg

DRUGS (7)
  1. DIAZEPAM [Suspect]
     Route: 065
  2. SINEMET CR [Suspect]
     Route: 048
  3. CITALOPRAM [Suspect]
     Route: 048
  4. OXYCODONE HCL AND ACETAMINOPHEN [Suspect]
     Route: 048
  5. LORAZEPAM [Suspect]
     Route: 065
  6. WELLBUTRIN XL [Suspect]
     Route: 065
  7. GABAPENTIN [Suspect]
     Route: 065

REACTIONS (1)
  - TOXICITY TO VARIOUS AGENTS [None]
